FAERS Safety Report 6829958-8 (Version None)
Quarter: 2010Q3

REPORT INFORMATION
  Report Type: 
  Country: None (occurrence: None)
  Receive Date: 20100711
  Receipt Date: 20100428
  Transmission Date: 20110219
  Serious: No
  Sender: FDA-Public Use
  Company Number: US-ALLERGAN-1004513US

PATIENT
  Age: 36 Year
  Sex: Female

DRUGS (4)
  1. LATISSE [Suspect]
     Indication: GROWTH OF EYELASHES
     Dosage: 1 GTT, QHS
     Dates: start: 20090728
  2. PRED MILD [Concomitant]
     Indication: SYSTEMIC LUPUS ERYTHEMATOSUS
     Dosage: UNK
  3. BOTOX [Concomitant]
     Dosage: UNK
     Dates: start: 20100322
  4. DERMAL FILLER [Concomitant]
     Dosage: UNK
     Dates: start: 20100322

REACTIONS (1)
  - HAIR GROWTH ABNORMAL [None]
